FAERS Safety Report 23611066 (Version 1)
Quarter: 2024Q1

REPORT INFORMATION
  Report Type: Spontaneous
  Country: CA (occurrence: CA)
  Receive Date: 20240308
  Receipt Date: 20240308
  Transmission Date: 20240409
  Serious: Yes (Other)
  Sender: FDA-Public Use
  Company Number: CA-PFIZER INC-202400055142

PATIENT
  Age: 24 Year
  Sex: Male
  Weight: 81 kg

DRUGS (9)
  1. DALTEPARIN SODIUM [Suspect]
     Active Substance: DALTEPARIN SODIUM
     Indication: Thrombosis prophylaxis
     Dosage: UNK, 1X/DAY
     Route: 058
  2. DABRAFENIB [Suspect]
     Active Substance: DABRAFENIB
     Indication: Glioma
     Dosage: 150 MG, 2X/DAY
     Route: 048
  3. BISACODYL [Concomitant]
     Active Substance: BISACODYL
     Dosage: 10 MG 1 EVERY 48 HOURS
  4. FERROUS SULFATE ANHYDROUS [Concomitant]
     Active Substance: FERROUS SULFATE ANHYDROUS
     Dosage: 300 MG 1 EVERY 8 HOURS
     Route: 065
  5. KEPPRA [Concomitant]
     Active Substance: LEVETIRACETAM
     Dosage: 1500 MG, 2X/DAY
     Route: 065
  6. LACOSAMIDE [Concomitant]
     Active Substance: LACOSAMIDE
     Dosage: 200 MG, 2X/DAY
     Route: 065
  7. MIDODRINE [Concomitant]
     Active Substance: MIDODRINE
     Dosage: 10 MG 1 EVERY 6 HOURS
     Route: 065
  8. POTASSIUM CHLORIDE [Concomitant]
     Active Substance: POTASSIUM CHLORIDE
     Dosage: UNK, 1X/DAY
     Route: 065
  9. SENNA TABS [Concomitant]
     Active Substance: SENNOSIDES A AND B
     Dosage: 2 DF, 1X/DAY
     Route: 065

REACTIONS (3)
  - Glioma [Not Recovered/Not Resolved]
  - Malignant neoplasm progression [Not Recovered/Not Resolved]
  - Tumour haemorrhage [Not Recovered/Not Resolved]
